FAERS Safety Report 4408551-0 (Version None)
Quarter: 2004Q3

REPORT INFORMATION
  Report Type: 
  Country: None (occurrence: None)
  Receive Date: 20040722
  Receipt Date: 20040709
  Transmission Date: 20050211
  Serious: Yes (Other)
  Sender: FDA-Public Use
  Company Number: US-JNJFOC-20040702850

PATIENT
  Age: 50 Year
  Sex: Female

DRUGS (10)
  1. INFLIXIMAB (INFLIXIMAB, RECOMBINANT) LYOPHILIZED POWDER [Suspect]
     Indication: RHEUMATOID ARTHRITIS
     Dosage: INTRAVENOUS
     Route: 042
     Dates: start: 20010315, end: 20031101
  2. AMBIEN [Concomitant]
  3. METHOTREXATE SODIUM [Concomitant]
  4. PREDNISONE [Concomitant]
  5. CALCIUM WITH VITAMIN D (CALCIUM WITH VITAMIN D) [Concomitant]
  6. POTASSIUM (POTASSIUM) [Concomitant]
  7. FOLIC ACID [Concomitant]
  8. MULTIVITAMIN (MULTIVITAMINS) [Concomitant]
  9. ULTRACET (TRAMADOL/APAP) [Concomitant]
  10. DARVOCET [Concomitant]

REACTIONS (3)
  - CHEST PAIN [None]
  - INFLAMMATION [None]
  - OEDEMA PERIPHERAL [None]
